FAERS Safety Report 9449542 (Version 1)
Quarter: 2013Q3

REPORT INFORMATION
  Report Type: Spontaneous
  Country: US (occurrence: US)
  Receive Date: 20130809
  Receipt Date: 20130809
  Transmission Date: 20140515
  Serious: Yes (Other)
  Sender: FDA-Public Use
  Company Number: US-AMGEN-USASP2013054801

PATIENT
  Age: 65 Year
  Sex: Female

DRUGS (2)
  1. PROLIA [Suspect]
     Indication: PRODUCT USED FOR UNKNOWN INDICATION
     Dosage: UNK
     Route: 065
  2. CHEMOTHERAPEUTICS [Concomitant]

REACTIONS (5)
  - Breast cancer stage I [Unknown]
  - Back pain [Unknown]
  - Mobility decreased [Unknown]
  - Pain [Unknown]
  - Impaired driving ability [Unknown]
